FAERS Safety Report 8326941-0 (Version None)
Quarter: 2012Q2

REPORT INFORMATION
  Report Type: 
  Country: None (occurrence: None)
  Receive Date: 20120501
  Receipt Date: 20120424
  Transmission Date: 20120825
  Serious: Yes (Hospitalization)
  Sender: FDA-Public Use
  Company Number: US-ELI_LILLY_AND_COMPANY-US201203005144

PATIENT
  Sex: Female

DRUGS (6)
  1. HUMULIN R [Suspect]
     Indication: TYPE 1 DIABETES MELLITUS
     Dosage: 10 U, EACH MORNING
  2. HUMULIN R [Suspect]
     Dosage: 8 U, EACH EVENING
  3. HUMULIN R [Suspect]
     Dosage: UNK UNK, PRN
  4. HUMULIN N [Suspect]
     Dosage: UNK UNK, PRN
  5. HUMULIN N [Suspect]
     Indication: TYPE 1 DIABETES MELLITUS
     Dosage: 20 U, EACH MORNING
  6. HUMULIN N [Suspect]
     Dosage: 15 U, EACH EVENING

REACTIONS (3)
  - DRUG INEFFECTIVE [None]
  - BLOOD GLUCOSE INCREASED [None]
  - HOSPITALISATION [None]
